FAERS Safety Report 4588238-4 (Version None)
Quarter: 2005Q1

REPORT INFORMATION
  Report Type: 
  Country: None (occurrence: None)
  Receive Date: 20050221
  Receipt Date: 20050215
  Transmission Date: 20050727
  Serious: Yes (Life-Threatening)
  Sender: FDA-Public Use
  Company Number: FR-ROCHE-395486

PATIENT
  Age: 95 Year
  Sex: Female
  Weight: 64 kg

DRUGS (5)
  1. VALIUM [Suspect]
     Route: 042
     Dates: start: 20050106, end: 20050106
  2. RISPERDAL [Concomitant]
     Route: 048
  3. COVERSYL [Concomitant]
     Indication: ESSENTIAL HYPERTENSION
     Route: 048
  4. TANAKAN [Concomitant]
     Route: 048
  5. ASPEGIC 325 [Concomitant]
     Route: 048

REACTIONS (2)
  - COMA [None]
  - RESPIRATORY ARREST [None]
